FAERS Safety Report 15823679 (Version 1)
Quarter: 2019Q1

REPORT INFORMATION
  Report Type: Spontaneous
  Country: CZ (occurrence: CZ)
  Receive Date: 20190114
  Receipt Date: 20190114
  Transmission Date: 20190417
  Serious: Yes (Hospitalization)
  Sender: FDA-Public Use
  Company Number: CZ-LINDE-CZ-E2B_00000033

PATIENT
  Age: 6 Year
  Sex: Male
  Weight: 19.4 kg

DRUGS (1)
  1. NITROUS OXIDE (GENERIC) [Suspect]
     Active Substance: NITROUS OXIDE
     Indication: ANAESTHESIA
     Route: 055

REACTIONS (2)
  - Dehydration [Recovered/Resolved]
  - Vomiting [Recovered/Resolved]

NARRATIVE: CASE EVENT DATE: 20181206
